FAERS Safety Report 25273393 (Version 2)
Quarter: 2025Q2

REPORT INFORMATION
  Report Type: Spontaneous
  Country: CN (occurrence: CN)
  Receive Date: 20250506
  Receipt Date: 20250515
  Transmission Date: 20250716
  Serious: Yes (Life-Threatening, Other)
  Sender: ROCHE
  Company Number: CN-BoehringerIngelheim-2025-BI-025534

PATIENT
  Age: 90 Year
  Sex: Female
  Weight: 66.6 kg

DRUGS (1)
  1. ALTEPLASE [Suspect]
     Active Substance: ALTEPLASE
     Indication: Cerebral infarction
     Route: 042
     Dates: start: 20250429, end: 20250429

REACTIONS (3)
  - Cerebral haemorrhage [Unknown]
  - Hydrocephalus [Unknown]
  - Brain oedema [Unknown]

NARRATIVE: CASE EVENT DATE: 20250429
